FAERS Safety Report 25719013 (Version 2)
Quarter: 2025Q3

REPORT INFORMATION
  Report Type: Spontaneous
  Country: US (occurrence: US)
  Receive Date: 20250823
  Receipt Date: 20250926
  Transmission Date: 20251021
  Serious: No
  Sender: MERCK SHARP & DOHME LLC
  Company Number: US-009507513-2312669

PATIENT
  Age: 40 Year
  Sex: Female

DRUGS (12)
  1. M-M-R II [Suspect]
     Active Substance: MEASLES VIRUS STRAIN ENDERS^ ATTENUATED EDMONSTON LIVE ANTIGEN\MUMPS VIRUS STRAIN B LEVEL JERYL LYNN
     Indication: Prophylaxis
     Route: 050
     Dates: start: 20250722, end: 20250722
  2. STERILE DILUENT (WATER) [Suspect]
     Active Substance: WATER
     Indication: Prophylaxis
     Route: 058
     Dates: start: 20250722, end: 20250722
  3. TYLENOL [Concomitant]
     Active Substance: ACETAMINOPHEN
  4. IBUPROFEN [Concomitant]
     Active Substance: IBUPROFEN
  5. MIRALAX [Concomitant]
     Active Substance: POLYETHYLENE GLYCOL 3350
  6. SENNA [Concomitant]
     Active Substance: SENNOSIDES
  7. TUMS [Concomitant]
     Active Substance: CALCIUM CARBONATE
  8. Witch hazel topical pads for perineum [Concomitant]
  9. DIBUCAINE [Concomitant]
     Active Substance: DIBUCAINE
  10. Oxytocin infusion [Concomitant]
  11. Antibiotic Zosyn [Concomitant]
  12. Epidural [Concomitant]

REACTIONS (1)
  - Dermatitis contact [Recovered/Resolved]

NARRATIVE: CASE EVENT DATE: 20250722
